FAERS Safety Report 8326074-3 (Version None)
Quarter: 2012Q2

REPORT INFORMATION
  Report Type: 
  Country: None (occurrence: None)
  Receive Date: 20120501
  Receipt Date: 20120426
  Transmission Date: 20120825
  Serious: Yes (Other)
  Sender: FDA-Public Use
  Company Number: JP-GLAXOSMITHKLINE-B0795334A

PATIENT
  Sex: Female

DRUGS (12)
  1. GLAKAY [Concomitant]
     Indication: OSTEOPOROSIS
     Dosage: 45MG PER DAY
     Route: 048
     Dates: start: 20100421
  2. REQUIP [Suspect]
     Dosage: 2MG PER DAY
     Route: 048
     Dates: start: 20101101, end: 20110111
  3. REQUIP [Suspect]
     Dosage: 3MG PER DAY
     Route: 048
     Dates: start: 20110112, end: 20110403
  4. PLAVIX [Concomitant]
     Indication: PROPHYLAXIS
     Dosage: 25MG PER DAY
     Route: 048
     Dates: start: 20100421
  5. CARVEDILOL [Concomitant]
     Indication: HYPERTENSION
     Dosage: 20MG PER DAY
     Route: 048
     Dates: start: 20100421
  6. REQUIP [Suspect]
     Dosage: 1MG PER DAY
     Route: 048
     Dates: start: 20100616, end: 20101031
  7. REQUIP [Suspect]
     Route: 048
     Dates: start: 20110822, end: 20120221
  8. RABEPRAZOLE SODIUM [Concomitant]
     Indication: GASTROOESOPHAGEAL REFLUX DISEASE
     Dosage: 10MG PER DAY
     Route: 048
     Dates: start: 20100421
  9. REQUIP [Suspect]
     Indication: PARKINSON'S DISEASE
     Dosage: .5MG PER DAY
     Route: 048
     Dates: start: 20100421, end: 20100615
  10. REQUIP [Suspect]
     Route: 048
     Dates: start: 20110404, end: 20110821
  11. REZALTAS [Concomitant]
     Indication: HYPERTENSION
     Dosage: 1IUAX PER DAY
     Route: 048
     Dates: start: 20100421
  12. REQUIP [Suspect]
     Route: 048
     Dates: start: 20120220

REACTIONS (2)
  - DELIRIUM [None]
  - ABNORMAL BEHAVIOUR [None]
